FAERS Safety Report 21104736 (Version 3)
Quarter: 2022Q3

REPORT INFORMATION
  Report Type: Report from Study
  Country: CA (occurrence: CA)
  Receive Date: 20220720
  Receipt Date: 20220831
  Transmission Date: 20221026
  Serious: Yes (Hospitalization)
  Sender: FDA-Public Use
  Company Number: CA-JNJFOC-20220729996

PATIENT
  Age: 32 Year
  Sex: Female
  Weight: 104 kg

DRUGS (1)
  1. REMICADE [Suspect]
     Active Substance: INFLIXIMAB
     Indication: Takayasu^s arteritis
     Route: 041
     Dates: start: 20170303

REACTIONS (2)
  - Bacterial sepsis [Recovering/Resolving]
  - Takayasu^s arteritis [Unknown]

NARRATIVE: CASE EVENT DATE: 20220703
